FAERS Safety Report 24461419 (Version 1)
Quarter: 2024Q4

REPORT INFORMATION
  Report Type: Spontaneous
  Country: ZA (occurrence: ZA)
  Receive Date: 20241018
  Receipt Date: 20241018
  Transmission Date: 20250115
  Serious: No
  Sender: ROCHE
  Company Number: ZA-ROCHE-3539397

PATIENT
  Age: 54 Year
  Sex: Female

DRUGS (4)
  1. RITUXIMAB [Suspect]
     Active Substance: RITUXIMAB
     Indication: Product used for unknown indication
     Dosage: APART 6 MONTHLY
     Route: 065
  2. ARAVA [Concomitant]
     Active Substance: LEFLUNOMIDE
     Dates: start: 20150401, end: 20160817
  3. ORENCIA [Concomitant]
     Active Substance: ABATACEPT
     Dates: start: 20160401, end: 20161012
  4. SIMPONI [Concomitant]
     Active Substance: GOLIMUMAB
     Dates: start: 20161106

REACTIONS (2)
  - Drug ineffective [Unknown]
  - No adverse event [Unknown]
